FAERS Safety Report 16937902 (Version 4)
Quarter: 2020Q3

REPORT INFORMATION
  Report Type: Report from Study
  Country: DE (occurrence: DE)
  Receive Date: 20191018
  Receipt Date: 20200902
  Transmission Date: 20201102
  Serious: Yes (Hospitalization, Other)
  Sender: FDA-Public Use
  Company Number: DE-PURDUE-GBR-2019-0071648

PATIENT
  Sex: Female
  Weight: 57 kg

DRUGS (3)
  1. ORAMORPH [Suspect]
     Active Substance: MORPHINE SULFATE
     Indication: CHEST PAIN
     Dosage: 10 MG, UNK (UP TO 6X1)
     Route: 048
     Dates: start: 20190904
  2. LETROZOLE. [Suspect]
     Active Substance: LETROZOLE
     Indication: BREAST CANCER METASTATIC
     Dosage: 2.5 MG, DAILY
     Route: 048
     Dates: start: 20190902
  3. HYDROMORPHONE HCL (SIMILAR TO 19?892) [Suspect]
     Active Substance: HYDROMORPHONE HYDROCHLORIDE
     Indication: PAIN
     Dosage: 4 MG, BID (2X1)
     Route: 048
     Dates: start: 20190923

REACTIONS (5)
  - Leukopenia [Recovered/Resolved]
  - Pain [Unknown]
  - Leukopenia [Not Recovered/Not Resolved]
  - Constipation [Recovered/Resolved]
  - Chest pain [Recovering/Resolving]

NARRATIVE: CASE EVENT DATE: 20190903
